FAERS Safety Report 13905902 (Version 1)
Quarter: 2017Q3

REPORT INFORMATION
  Report Type: Spontaneous
  Country: IS (occurrence: IS)
  Receive Date: 20170825
  Receipt Date: 20170825
  Transmission Date: 20171127
  Serious: Yes (Other)
  Sender: FDA-Public Use
  Company Number: IS-GLAXOSMITHKLINE-IS2017GSK121371

PATIENT
  Sex: Male

DRUGS (1)
  1. NICOTINELL FRUIT NICOTINE GUM [Suspect]
     Active Substance: NICOTINE
     Indication: SMOKING CESSATION THERAPY
     Dosage: 2 MG, UNK
     Dates: start: 2011

REACTIONS (6)
  - Overdose [Unknown]
  - Incorrect drug administration duration [Unknown]
  - Product quality issue [Unknown]
  - Intentional product misuse [Not Recovered/Not Resolved]
  - Nicotine dependence [Not Recovered/Not Resolved]
  - Circumstance or information capable of leading to medication error [Unknown]
